FAERS Safety Report 9391304 (Version 5)
Quarter: 2016Q4

REPORT INFORMATION
  Report Type: Report from Study
  Country: US (occurrence: US)
  Receive Date: 20130709
  Receipt Date: 20161214
  Transmission Date: 20170207
  Serious: Yes (Life-Threatening, Hospitalization, Other)
  Sender: FDA-Public Use
  Company Number: US-ALEXION-A201301530

PATIENT
  Age: 25 Year
  Sex: Female
  Weight: 106 kg

DRUGS (115)
  1. PROGRAF [Concomitant]
     Active Substance: TACROLIMUS\TACROLIMUS ANHYDROUS
     Dosage: 3 MG, QD
     Route: 048
     Dates: end: 20130415
  2. BENADRYL [Concomitant]
     Active Substance: DIPHENHYDRAMINE HYDROCHLORIDE
     Indication: PRURITUS
     Dosage: 25 MG, SINGLE
     Route: 042
     Dates: start: 20130415, end: 20130415
  3. DILAUDID [Concomitant]
     Active Substance: HYDROMORPHONE HYDROCHLORIDE
     Indication: PAIN
     Dosage: 1 MG, PRN
     Route: 042
     Dates: start: 20130415, end: 20130415
  4. DILAUDID [Concomitant]
     Active Substance: HYDROMORPHONE HYDROCHLORIDE
     Dosage: 1 MG, PRN
     Route: 042
     Dates: start: 20130425, end: 20130425
  5. DILAUDID [Concomitant]
     Active Substance: HYDROMORPHONE HYDROCHLORIDE
     Dosage: 0.25 MG, SINGLE
     Route: 042
     Dates: start: 20130510, end: 20130510
  6. PHENERGAN [Concomitant]
     Active Substance: PROMETHAZINE HYDROCHLORIDE
     Dosage: 12.5 MG, SINGLE
     Route: 042
     Dates: start: 20130511, end: 20130511
  7. DIOVAN [Concomitant]
     Active Substance: VALSARTAN
     Indication: PRODUCT USED FOR UNKNOWN INDICATION
     Dosage: 160 MG, QD
     Route: 048
     Dates: end: 20130418
  8. NORMAL SALINE [Concomitant]
     Active Substance: SODIUM CHLORIDE
     Indication: TRANSFUSION
     Dosage: 1000 ML, CONTINUOUS
     Route: 042
     Dates: end: 20130418
  9. NORMAL SALINE [Concomitant]
     Active Substance: SODIUM CHLORIDE
     Dosage: 250 ML, SINGLE, CONTINUOUS
     Route: 042
     Dates: end: 20130418
  10. MAGNESIUM CITRATE. [Concomitant]
     Active Substance: MAGNESIUM CITRATE
     Indication: PRODUCT USED FOR UNKNOWN INDICATION
     Dosage: 300 ML, SINGLE
     Route: 048
     Dates: start: 20130416, end: 20130416
  11. COREG [Concomitant]
     Active Substance: CARVEDILOL
     Dosage: 25 MG, Q12H
     Route: 048
     Dates: end: 20130513
  12. CELEXA [Concomitant]
     Active Substance: CITALOPRAM HYDROBROMIDE
     Dosage: 20 MG, QD
     Route: 048
     Dates: end: 20130418
  13. VITAMIN D [Concomitant]
     Active Substance: CHOLECALCIFEROL
     Indication: PRODUCT USED FOR UNKNOWN INDICATION
     Dosage: 50000 IU, QW
     Route: 048
     Dates: end: 20130415
  14. VITAMIN D [Concomitant]
     Active Substance: CHOLECALCIFEROL
     Dosage: 50000 IU, QW, EVERY MON.
     Route: 048
     Dates: end: 20130418
  15. PROGRAF [Concomitant]
     Active Substance: TACROLIMUS\TACROLIMUS ANHYDROUS
     Dosage: 4 MG, Q12H
     Route: 048
     Dates: end: 20130513
  16. VALCYTE [Concomitant]
     Active Substance: VALGANCICLOVIR HYDROCHLORIDE
     Indication: PRODUCT USED FOR UNKNOWN INDICATION
     Dosage: 450 MG, QD
     Route: 065
     Dates: end: 20130415
  17. AMBIEN [Concomitant]
     Active Substance: ZOLPIDEM TARTRATE
     Indication: PRODUCT USED FOR UNKNOWN INDICATION
     Dosage: 10 MG, QD, AT BEDTIME
     Route: 048
     Dates: end: 20130415
  18. LONITEN [Concomitant]
     Active Substance: MINOXIDIL
     Indication: PRODUCT USED FOR UNKNOWN INDICATION
     Dosage: 5 MG, BID
     Route: 048
     Dates: end: 20130511
  19. CATAPRES                           /00171101/ [Concomitant]
     Active Substance: CLONIDINE
     Indication: PRODUCT USED FOR UNKNOWN INDICATION
     Dosage: 0.1 MG, SINGLE
     Route: 048
     Dates: end: 20130415
  20. BENADRYL [Concomitant]
     Active Substance: DIPHENHYDRAMINE HYDROCHLORIDE
     Dosage: 12.5 MG, SINGLE
     Route: 042
     Dates: start: 20130418, end: 20130418
  21. BENADRYL [Concomitant]
     Active Substance: DIPHENHYDRAMINE HYDROCHLORIDE
     Dosage: 25 MG, Q4H
     Route: 048
     Dates: end: 20130418
  22. BENADRYL [Concomitant]
     Active Substance: DIPHENHYDRAMINE HYDROCHLORIDE
     Dosage: 12.5 MG, SINGLE
     Route: 042
     Dates: start: 20130425, end: 20130425
  23. TRANDATE [Concomitant]
     Active Substance: LABETALOL HYDROCHLORIDE
     Indication: BLOOD PRESSURE INCREASED
     Dosage: 20 MG, SINGLE
     Route: 042
     Dates: start: 20130510, end: 20130510
  24. PHENERGAN [Concomitant]
     Active Substance: PROMETHAZINE HYDROCHLORIDE
     Dosage: 12.5 MG, SINGLE
     Route: 042
     Dates: start: 20130427, end: 20130427
  25. HEPARIN LOCK FLUSH [Concomitant]
     Active Substance: HEPARIN SODIUM
     Indication: CATHETER REMOVAL
     Dosage: 5 UNIT, SINGLE
     Route: 042
     Dates: start: 20130501, end: 20130501
  26. NORMAL SALINE [Concomitant]
     Active Substance: SODIUM CHLORIDE
     Dosage: 1000 ML, CONTINUOUS
     Route: 042
     Dates: start: 20130420, end: 20130420
  27. ECULIZUMAB [Suspect]
     Active Substance: ECULIZUMAB
     Indication: HAEMOLYTIC URAEMIC SYNDROME
     Dosage: UNK
     Route: 042
     Dates: start: 20111026
  28. SENSIPAR [Concomitant]
     Active Substance: CINACALCET HYDROCHLORIDE
     Dosage: 30 MG, QOD
     Route: 048
     Dates: end: 20130513
  29. VITAMIN D [Concomitant]
     Active Substance: CHOLECALCIFEROL
     Dosage: 50000 IU, QW
     Route: 048
     Dates: end: 20130511
  30. REGLAN [Concomitant]
     Active Substance: METOCLOPRAMIDE HYDROCHLORIDE
     Dosage: 10 MG, SINGLE
     Route: 042
     Dates: end: 20130425
  31. REGLAN [Concomitant]
     Active Substance: METOCLOPRAMIDE HYDROCHLORIDE
     Dosage: 10 MG, SINGLE
     Route: 042
     Dates: end: 20130427
  32. NEXIUM [Concomitant]
     Active Substance: ESOMEPRAZOLE MAGNESIUM
     Indication: PRODUCT USED FOR UNKNOWN INDICATION
     Dosage: UNK
     Route: 065
  33. PROGRAF [Concomitant]
     Active Substance: TACROLIMUS\TACROLIMUS ANHYDROUS
     Dosage: 3 MG, QD, 6 AM
     Route: 048
     Dates: end: 20130415
  34. CATAPRES                           /00171101/ [Concomitant]
     Active Substance: CLONIDINE
     Dosage: 0.3 MG, TID
     Route: 048
     Dates: end: 20130418
  35. CATAPRES                           /00171101/ [Concomitant]
     Active Substance: CLONIDINE
     Dosage: 0.2 MG, SINGLE
     Route: 048
     Dates: end: 20130425
  36. BENADRYL [Concomitant]
     Active Substance: DIPHENHYDRAMINE HYDROCHLORIDE
     Dosage: 12.5 MG, SINGLE
     Route: 042
     Dates: start: 20130510, end: 20130510
  37. BENADRYL [Concomitant]
     Active Substance: DIPHENHYDRAMINE HYDROCHLORIDE
     Dosage: 12.5 MG, SINGLE
     Route: 042
     Dates: start: 20130511, end: 20130511
  38. DILAUDID [Concomitant]
     Active Substance: HYDROMORPHONE HYDROCHLORIDE
     Dosage: 0.25 MG, SINGLE
     Route: 042
     Dates: start: 20130510, end: 20130510
  39. GOLYTELY [Concomitant]
     Active Substance: POLYETHYLENE GLYCOL 3350\POTASSIUM CHLORIDE\SODIUM BICARBONATE\SODIUM CHLORIDE\SODIUM SULFATE ANHYDROUS
     Indication: PRODUCT USED FOR UNKNOWN INDICATION
     Dosage: 4000 ML, SINGLE
     Route: 048
     Dates: start: 20130416, end: 20130416
  40. NORVASC [Concomitant]
     Active Substance: AMLODIPINE BESYLATE
     Dosage: 5 MG, QD
     Route: 048
     Dates: end: 20130511
  41. NORVASC [Concomitant]
     Active Substance: AMLODIPINE BESYLATE
     Dosage: 10 MG, QD
     Route: 048
     Dates: end: 20130513
  42. IMURAN [Concomitant]
     Active Substance: AZATHIOPRINE
     Indication: PRODUCT USED FOR UNKNOWN INDICATION
     Dosage: 50 MG, QD
     Dates: end: 20130418
  43. REGLAN [Concomitant]
     Active Substance: METOCLOPRAMIDE HYDROCHLORIDE
     Dosage: 10 MG, Q4H
     Route: 042
     Dates: end: 20130418
  44. DELTASONE [Concomitant]
     Active Substance: PREDNISONE
     Dosage: 10 MG, QD
     Route: 048
     Dates: end: 20130418
  45. COLACE [Concomitant]
     Active Substance: DOCUSATE SODIUM
     Indication: PRODUCT USED FOR UNKNOWN INDICATION
     Dosage: 100 MG, BID, PRN
     Route: 048
     Dates: end: 20130513
  46. PROTONIX [Concomitant]
     Active Substance: PANTOPRAZOLE SODIUM
     Dosage: 40 MG, QD
     Route: 048
     Dates: end: 20130513
  47. PHENERGAN [Concomitant]
     Active Substance: PROMETHAZINE HYDROCHLORIDE
     Dosage: 12.5 MG, SINGLE
     Route: 042
     Dates: start: 20130418, end: 20130418
  48. PHENERGAN [Concomitant]
     Active Substance: PROMETHAZINE HYDROCHLORIDE
     Dosage: 12.5 MG, SINGLE
     Route: 042
     Dates: start: 20130420, end: 20130420
  49. ULTRAM [Concomitant]
     Active Substance: TRAMADOL HYDROCHLORIDE
     Indication: PAIN
     Dosage: 50 MG, Q4H
     Route: 048
     Dates: end: 20130513
  50. NORVASC [Concomitant]
     Active Substance: AMLODIPINE BESYLATE
     Dosage: 5 MG, SINGLE
     Route: 048
     Dates: start: 20160511, end: 20160511
  51. IMURAN [Concomitant]
     Active Substance: AZATHIOPRINE
     Dosage: 50 MG, QD
     Route: 048
     Dates: end: 20130513
  52. APRESOLINE HYDROCHLORIDE [Concomitant]
     Active Substance: HYDRALAZINE HYDROCHLORIDE
     Dosage: 10 MG, SINGLE
     Route: 042
     Dates: start: 20130510, end: 20130510
  53. REGLAN [Concomitant]
     Active Substance: METOCLOPRAMIDE HYDROCHLORIDE
     Indication: PRODUCT USED FOR UNKNOWN INDICATION
     Dosage: 10 MG, SINGLE
     Route: 042
     Dates: end: 20130415
  54. PROGRAF [Concomitant]
     Active Substance: TACROLIMUS\TACROLIMUS ANHYDROUS
     Indication: PRODUCT USED FOR UNKNOWN INDICATION
     Dosage: 3 TAB, QD
     Route: 048
  55. PROGRAF [Concomitant]
     Active Substance: TACROLIMUS\TACROLIMUS ANHYDROUS
     Dosage: 2 MG, QD, EVENING
     Route: 048
     Dates: end: 20130415
  56. PROGRAF [Concomitant]
     Active Substance: TACROLIMUS\TACROLIMUS ANHYDROUS
     Dosage: 2 MG, QD, 6 PM
     Route: 048
     Dates: end: 20130415
  57. CATAPRES                           /00171101/ [Concomitant]
     Active Substance: CLONIDINE
     Dosage: 0.2 MG, SINGLE
     Route: 048
     Dates: end: 20130510
  58. BENADRYL [Concomitant]
     Active Substance: DIPHENHYDRAMINE HYDROCHLORIDE
     Dosage: 12.5 MG, SINGLE
     Route: 042
     Dates: start: 20130420, end: 20130420
  59. BENADRYL [Concomitant]
     Active Substance: DIPHENHYDRAMINE HYDROCHLORIDE
     Dosage: 50 MG, SINGLE
     Route: 042
     Dates: start: 20130425, end: 20130425
  60. BENADRYL [Concomitant]
     Active Substance: DIPHENHYDRAMINE HYDROCHLORIDE
     Dosage: 12.5 MG, SINGLE
     Route: 042
     Dates: start: 20130510, end: 20130510
  61. DILAUDID [Concomitant]
     Active Substance: HYDROMORPHONE HYDROCHLORIDE
     Dosage: 1 MG, Q3H, PRN
     Route: 042
     Dates: end: 20130418
  62. DILAUDID [Concomitant]
     Active Substance: HYDROMORPHONE HYDROCHLORIDE
     Dosage: 0.25 MG, SINGLE
     Route: 042
     Dates: start: 20130501, end: 20130501
  63. DILAUDID [Concomitant]
     Active Substance: HYDROMORPHONE HYDROCHLORIDE
     Dosage: 0.25 MG, SINGLE
     Route: 042
     Dates: start: 20130501, end: 20130501
  64. TRANDATE [Concomitant]
     Active Substance: LABETALOL HYDROCHLORIDE
     Dosage: 10 MG, Q6H
     Route: 042
     Dates: end: 20130513
  65. PHENERGAN [Concomitant]
     Active Substance: PROMETHAZINE HYDROCHLORIDE
     Dosage: 12.5 MG, SINGLE
     Route: 042
     Dates: start: 20130501, end: 20130501
  66. PHENERGAN [Concomitant]
     Active Substance: PROMETHAZINE HYDROCHLORIDE
     Dosage: 12.5 MG, SINGLE
     Route: 042
     Dates: start: 20130501, end: 20130501
  67. PHENERGAN [Concomitant]
     Active Substance: PROMETHAZINE HYDROCHLORIDE
     Dosage: 12.5 MG, SINGLE
     Route: 042
     Dates: start: 20130510, end: 20130510
  68. ATIVAN [Concomitant]
     Active Substance: LORAZEPAM
     Dosage: 0.5 MG, TID, PRN
     Route: 042
     Dates: end: 20130418
  69. CELEXA [Concomitant]
     Active Substance: CITALOPRAM HYDROBROMIDE
     Indication: PRODUCT USED FOR UNKNOWN INDICATION
     Dosage: 30 MG, QD
     Route: 048
     Dates: end: 20130513
  70. LOSARTAN. [Concomitant]
     Active Substance: LOSARTAN
     Indication: PRODUCT USED FOR UNKNOWN INDICATION
     Dosage: UNK
     Route: 065
  71. REGLAN [Concomitant]
     Active Substance: METOCLOPRAMIDE HYDROCHLORIDE
     Dosage: 10 MG, TID
     Route: 048
     Dates: end: 20130513
  72. DILTIAZEM                          /00489702/ [Concomitant]
     Active Substance: DILTIAZEM
     Dosage: 360 MG, UNK
     Route: 048
     Dates: end: 20130513
  73. DELTASONE [Concomitant]
     Active Substance: PREDNISONE
     Dosage: 10 MG, QD
     Route: 048
     Dates: end: 20130513
  74. BENADRYL [Concomitant]
     Active Substance: DIPHENHYDRAMINE HYDROCHLORIDE
     Dosage: 12.5 MG, Q8H
     Route: 042
     Dates: end: 20130418
  75. BENADRYL [Concomitant]
     Active Substance: DIPHENHYDRAMINE HYDROCHLORIDE
     Dosage: 12.5 MG, SINGLE
     Route: 042
     Dates: start: 20130427, end: 20130427
  76. DILAUDID [Concomitant]
     Active Substance: HYDROMORPHONE HYDROCHLORIDE
     Dosage: 2 MG, SINGLE
     Route: 042
     Dates: start: 20130425, end: 20130425
  77. DILAUDID [Concomitant]
     Active Substance: HYDROMORPHONE HYDROCHLORIDE
     Dosage: 1 MG, PRN
     Route: 042
     Dates: start: 20130417, end: 20130417
  78. PHENERGAN [Concomitant]
     Active Substance: PROMETHAZINE HYDROCHLORIDE
     Indication: VOMITING
     Dosage: 25 MG, Q4H
     Route: 048
     Dates: end: 20130418
  79. PHENERGAN [Concomitant]
     Active Substance: PROMETHAZINE HYDROCHLORIDE
     Dosage: 12.5 MG, SINGLE
     Route: 042
     Dates: start: 20130425, end: 20130425
  80. HEPARIN LOCK FLUSH [Concomitant]
     Active Substance: HEPARIN SODIUM
     Dosage: 5 ML, SINGLE
     Route: 042
     Dates: start: 20130513, end: 20130513
  81. ATIVAN [Concomitant]
     Active Substance: LORAZEPAM
     Indication: ANXIETY
     Dosage: 0.5 MG, SINGLE
     Route: 042
     Dates: start: 20130510, end: 20130510
  82. NORMAL SALINE [Concomitant]
     Active Substance: SODIUM CHLORIDE
     Indication: ROUTINE HEALTH MAINTENANCE
     Dosage: 1000 ML, CONTINUOUS
     Route: 042
     Dates: end: 20130418
  83. NORMAL SALINE [Concomitant]
     Active Substance: SODIUM CHLORIDE
     Dosage: 500 ML, CONTINUOUS
     Route: 042
     Dates: start: 20130427, end: 20130427
  84. NORMAL SALINE [Concomitant]
     Active Substance: SODIUM CHLORIDE
     Dosage: 500 ML, CONTINUOUS
     Route: 042
     Dates: start: 20130510, end: 20130510
  85. ECULIZUMAB [Suspect]
     Active Substance: ECULIZUMAB
     Dosage: 1200 MG, Q2W
     Route: 042
     Dates: start: 20111107, end: 20140127
  86. SENSIPAR [Concomitant]
     Active Substance: CINACALCET HYDROCHLORIDE
     Indication: PRODUCT USED FOR UNKNOWN INDICATION
     Dosage: 30 MG, QOD
     Route: 048
     Dates: end: 20130418
  87. VITAMIN D [Concomitant]
     Active Substance: CHOLECALCIFEROL
     Dosage: 50000 IU, QW, EVERY SAT.
     Route: 048
     Dates: end: 20130513
  88. APRESOLINE HYDROCHLORIDE [Concomitant]
     Active Substance: HYDRALAZINE HYDROCHLORIDE
     Indication: PRODUCT USED FOR UNKNOWN INDICATION
     Dosage: 10 MG, Q6H
     Route: 042
     Dates: end: 20130418
  89. APRESOLINE HYDROCHLORIDE [Concomitant]
     Active Substance: HYDRALAZINE HYDROCHLORIDE
     Dosage: 50 MG, BID
     Route: 048
     Dates: end: 20130513
  90. DELTASONE [Concomitant]
     Active Substance: PREDNISONE
     Indication: PRODUCT USED FOR UNKNOWN INDICATION
     Dosage: 5 MG, QD
     Route: 065
  91. VALCYTE [Concomitant]
     Active Substance: VALGANCICLOVIR HYDROCHLORIDE
     Dosage: 450 MG, QD
     Route: 065
     Dates: end: 20130513
  92. PROVENTIL [Concomitant]
     Active Substance: ALBUTEROL
     Indication: PRODUCT USED FOR UNKNOWN INDICATION
     Dosage: 2.5 MG, Q4H, PRN
     Route: 055
     Dates: end: 20130513
  93. BENADRYL [Concomitant]
     Active Substance: DIPHENHYDRAMINE HYDROCHLORIDE
     Dosage: 25 MG, Q4H
     Route: 042
     Dates: end: 20130513
  94. PHENERGAN [Concomitant]
     Active Substance: PROMETHAZINE HYDROCHLORIDE
     Dosage: 12.5 MG, SINGLE
     Route: 042
     Dates: start: 20130510, end: 20130510
  95. PHENERGAN [Concomitant]
     Active Substance: PROMETHAZINE HYDROCHLORIDE
     Dosage: 12.5 MG, Q4H, PRN
     Route: 042
     Dates: end: 20130513
  96. HEPARIN LOCK FLUSH [Concomitant]
     Active Substance: HEPARIN SODIUM
     Dosage: 300 UNITS, SINGLE
     Route: 042
     Dates: start: 20130418, end: 20130418
  97. NORVASC [Concomitant]
     Active Substance: AMLODIPINE BESYLATE
     Indication: PRODUCT USED FOR UNKNOWN INDICATION
     Dosage: 5 MG, QD
     Route: 048
     Dates: end: 20130418
  98. COREG [Concomitant]
     Active Substance: CARVEDILOL
     Indication: PRODUCT USED FOR UNKNOWN INDICATION
     Dosage: 25 MG, Q12H
     Route: 048
     Dates: end: 20130418
  99. DILTIAZEM                          /00489702/ [Concomitant]
     Active Substance: DILTIAZEM
     Indication: PRODUCT USED FOR UNKNOWN INDICATION
     Dosage: 360 MG, UNK
     Route: 048
     Dates: end: 20130418
  100. SINGULAIR [Concomitant]
     Active Substance: MONTELUKAST SODIUM
     Indication: PRODUCT USED FOR UNKNOWN INDICATION
     Dosage: UNK
     Route: 065
  101. VALCYTE [Concomitant]
     Active Substance: VALGANCICLOVIR HYDROCHLORIDE
     Dosage: 450 MG, QD
     Route: 065
     Dates: end: 20130416
  102. AMBIEN [Concomitant]
     Active Substance: ZOLPIDEM TARTRATE
     Dosage: 10 MG, QD, AT BEDTIME
     Route: 048
     Dates: end: 20130513
  103. CATAPRES                           /00171101/ [Concomitant]
     Active Substance: CLONIDINE
     Dosage: 0.3 MG, SINGLE
     Route: 048
     Dates: end: 20130511
  104. CATAPRES                           /00171101/ [Concomitant]
     Active Substance: CLONIDINE
     Dosage: 0.3 MG, TID
     Route: 048
     Dates: end: 20130513
  105. ACETAMINOPHEN. [Concomitant]
     Active Substance: ACETAMINOPHEN
     Indication: PRODUCT USED FOR UNKNOWN INDICATION
     Dosage: 500 MG, Q4H, PRN
     Route: 048
     Dates: end: 20130513
  106. ZITHROMAX [Concomitant]
     Active Substance: AZITHROMYCIN DIHYDRATE
     Indication: PRODUCT USED FOR UNKNOWN INDICATION
     Dosage: 500 MG, QD
     Route: 042
     Dates: end: 20130513
  107. ROCEPHIN [Concomitant]
     Active Substance: CEFTRIAXONE SODIUM
     Indication: PRODUCT USED FOR UNKNOWN INDICATION
     Dosage: 1 G, SINGLE
     Route: 042
     Dates: end: 20130511
  108. BENADRYL [Concomitant]
     Active Substance: DIPHENHYDRAMINE HYDROCHLORIDE
     Dosage: 12.5 MG, SINGLE
     Route: 048
     Dates: start: 20130427, end: 20130427
  109. DILAUDID [Concomitant]
     Active Substance: HYDROMORPHONE HYDROCHLORIDE
     Dosage: 1 MG, PRN
     Route: 042
     Dates: start: 20130511, end: 20130511
  110. DILAUDID [Concomitant]
     Active Substance: HYDROMORPHONE HYDROCHLORIDE
     Dosage: 0.5 MG, PRN
     Route: 042
     Dates: end: 20130513
  111. PROTONIX [Concomitant]
     Active Substance: PANTOPRAZOLE SODIUM
     Indication: PRODUCT USED FOR UNKNOWN INDICATION
     Dosage: 40 MG, QD
     Route: 042
     Dates: end: 20130418
  112. PHENERGAN [Concomitant]
     Active Substance: PROMETHAZINE HYDROCHLORIDE
     Indication: NAUSEA
     Dosage: 12.5 MG, Q4H, PRN
     Route: 042
     Dates: start: 20130416, end: 20130418
  113. DIOVAN [Concomitant]
     Active Substance: VALSARTAN
     Dosage: 160 MG, QD
     Route: 048
     Dates: end: 20130513
  114. NORMAL SALINE [Concomitant]
     Active Substance: SODIUM CHLORIDE
     Dosage: 1000 ML, CONTINUOUS
     Route: 042
     Dates: start: 20130425, end: 20130425
  115. DIFLUCAN [Concomitant]
     Active Substance: FLUCONAZOLE
     Indication: PRODUCT USED FOR UNKNOWN INDICATION
     Dosage: 100 MG, QD
     Route: 042
     Dates: end: 20130418

REACTIONS (1)
  - Pneumonia [Recovered/Resolved]

NARRATIVE: CASE EVENT DATE: 20130511
